FAERS Safety Report 6475277-1 (Version None)
Quarter: 2009Q4

REPORT INFORMATION
  Report Type: 
  Country: None (occurrence: None)
  Receive Date: 20091204
  Receipt Date: 20090528
  Transmission Date: 20100525
  Serious: Yes (Other)
  Sender: FDA-Public Use
  Company Number: US-ELI_LILLY_AND_COMPANY-US200904001961

PATIENT
  Age: 65 Year
  Sex: Female
  Weight: 55.329 kg

DRUGS (1)
  1. HUMATROPE [Suspect]
     Indication: HYPOPITUITARISM
     Dosage: 0.2 MG, QOD
     Dates: start: 20070601, end: 20090205

REACTIONS (3)
  - ANAEMIA [None]
  - COLON CANCER [None]
  - INSULIN-LIKE GROWTH FACTOR DECREASED [None]
